FAERS Safety Report 9045522 (Version 1)
Quarter: 2013Q1

REPORT INFORMATION
  Report Type: Report from Study
  Country: US (occurrence: US)
  Receive Date: 20130131
  Receipt Date: 20130131
  Transmission Date: 20140127
  Serious: No
  Sender: FDA-Public Use
  Company Number: US-ABBOTT-12P-163-1005961-00

PATIENT
  Age: 36 Year
  Sex: Female

DRUGS (9)
  1. HUMIRA [Suspect]
     Indication: CROHN^S DISEASE
     Dosage: LOADING DOSE
     Dates: start: 20121024, end: 20121024
  2. HUMIRA [Suspect]
     Dosage: LOADING DOSE
  3. TRAMADOL [Concomitant]
     Indication: PRODUCT USED FOR UNKNOWN INDICATION
  4. ASACOL [Concomitant]
     Indication: CROHN^S DISEASE
  5. ESCITALOPRAM [Concomitant]
     Indication: DEPRESSION
  6. ESCITALOPRAM [Concomitant]
     Indication: ANXIETY
  7. SPIRONOLACTONE [Concomitant]
     Indication: FLUID RETENTION
  8. DICYCLOMINE [Concomitant]
     Indication: ABDOMINAL PAIN UPPER
     Dosage: AS NEEDED
  9. TUMS [Concomitant]
     Indication: BLOOD CALCIUM
     Dosage: DAILY

REACTIONS (1)
  - Injection site erythema [Not Recovered/Not Resolved]
